FAERS Safety Report 6306470-6 (Version None)
Quarter: 2009Q3

REPORT INFORMATION
  Report Type: 
  Country: None (occurrence: None)
  Receive Date: 20090810
  Receipt Date: 20090728
  Transmission Date: 20100115
  Serious: Yes (Other)
  Sender: FDA-Public Use
  Company Number: ADE09024-L

PATIENT
  Age: 59 Year
  Sex: 0

DRUGS (2)
  1. PAMIDRONATE DISODIUM [Suspect]
     Indication: METASTASES TO BONE
     Dosage: 90 MG, MONTHLY IV
     Route: 042
  2. LEUPROLIDE ACETATE [Concomitant]

REACTIONS (3)
  - DETACHMENT OF RETINAL PIGMENT EPITHELIUM [None]
  - VISION BLURRED [None]
  - VISUAL ACUITY REDUCED [None]
